FAERS Safety Report 20331900 (Version 2)
Quarter: 2022Q3

REPORT INFORMATION
  Report Type: Spontaneous
  Country: CA (occurrence: CA)
  Receive Date: 20220113
  Receipt Date: 20220715
  Transmission Date: 20221027
  Serious: Yes (Death)
  Sender: FDA-Public Use
  Company Number: CA-PFIZER INC-202200015056

PATIENT
  Age: 27 Year
  Sex: Female
  Weight: 58.957 kg

DRUGS (6)
  1. PREGABALIN [Suspect]
     Active Substance: PREGABALIN
     Indication: Anxiety
     Dosage: 50 MG, 2X/DAY
     Route: 048
  2. PREGABALIN [Suspect]
     Active Substance: PREGABALIN
     Dosage: 75 MG (2 EVERY 1 DAYS)
  3. NALTREXONE [Suspect]
     Active Substance: NALTREXONE
     Indication: Alcohol rehabilitation
     Dosage: 50 MG, DAILY
     Route: 048
  4. NALTREXONE [Concomitant]
     Active Substance: NALTREXONE
     Dosage: UNK
  5. PANTOPRAZOLE T [Concomitant]
     Dosage: UNK
  6. PANTOPRAZOLE MAGNESIUM [Concomitant]
     Active Substance: PANTOPRAZOLE MAGNESIUM
     Dosage: UNK

REACTIONS (2)
  - Completed suicide [Fatal]
  - Off label use [Unknown]
